FAERS Safety Report 7480636-4 (Version None)
Quarter: 2011Q2

REPORT INFORMATION
  Report Type: 
  Country: None (occurrence: None)
  Receive Date: 20110512
  Receipt Date: 20110512
  Transmission Date: 20111010
  Serious: Yes (Life-Threatening)
  Sender: FDA-Public Use
  Company Number: None

PATIENT
  Age: 47 Year
  Sex: Male
  Weight: 90 kg

DRUGS (1)
  1. VYTORIN [Suspect]

REACTIONS (4)
  - PNEUMONIA [None]
  - SEPTIC SHOCK [None]
  - DERMATOMYOSITIS [None]
  - ASTHENIA [None]
